FAERS Safety Report 20151724 (Version 1)
Quarter: 2021Q4

REPORT INFORMATION
  Report Type: Spontaneous
  Country: US (occurrence: US)
  Receive Date: 20211206
  Receipt Date: 20211206
  Transmission Date: 20220303
  Serious: No
  Sender: FDA-Public Use
  Company Number: US-HARMONY BIOSCIENCES-2021HMY01792

PATIENT
  Sex: Male
  Weight: 79 kg

DRUGS (13)
  1. WAKIX [Suspect]
     Active Substance: PITOLISANT HYDROCHLORIDE
     Indication: Narcolepsy
     Dosage: 8.9 MG, 1X/DAY X 7 DAYS
     Route: 048
     Dates: start: 20210709, end: 20210715
  2. WAKIX [Suspect]
     Active Substance: PITOLISANT HYDROCHLORIDE
     Dosage: 17.8 MG, 1X/DAY X 7 DAYS
     Route: 048
     Dates: start: 20210716, end: 20210722
  3. WAKIX [Suspect]
     Active Substance: PITOLISANT HYDROCHLORIDE
     Dosage: 35.6 MG, 1X/DAY
     Route: 048
     Dates: start: 20210723, end: 20210807
  4. WAKIX [Suspect]
     Active Substance: PITOLISANT HYDROCHLORIDE
     Dosage: RESTARTED AND HAS NOT BEEN TITRATED UP TO THE FULL DOSE
     Route: 048
     Dates: start: 202108, end: 2021
  5. WAKIX [Suspect]
     Active Substance: PITOLISANT HYDROCHLORIDE
     Dosage: CONTINUE AS PRESCRIBED
     Route: 048
     Dates: start: 2021
  6. DESOXYN [Concomitant]
     Active Substance: METHAMPHETAMINE HYDROCHLORIDE
  7. ATORVASTATIN [Concomitant]
     Active Substance: ATORVASTATIN
  8. METOPROLOL [Concomitant]
     Active Substance: METOPROLOL
  9. XYREM [Concomitant]
     Active Substance: SODIUM OXYBATE
  10. TAMSULOSIN [Concomitant]
     Active Substance: TAMSULOSIN
  11. NORCO [Concomitant]
     Active Substance: ACETAMINOPHEN\HYDROCODONE BITARTRATE
  12. VITAMIN D3 [Concomitant]
     Active Substance: CHOLECALCIFEROL
  13. MAGNESIUM OXIDE [Concomitant]
     Active Substance: MAGNESIUM OXIDE

REACTIONS (1)
  - Apathy [Unknown]

NARRATIVE: CASE EVENT DATE: 20210101
